FAERS Safety Report 8592706-8 (Version None)
Quarter: 2012Q3

REPORT INFORMATION
  Report Type: 
  Country: None (occurrence: None)
  Receive Date: 20120814
  Receipt Date: 20120616
  Transmission Date: 20120928
  Serious: No
  Sender: FDA-Public Use
  Company Number: US-COVIDIEN/TYCO HEALTHCARE/MALLINCKRODT-T201202593

PATIENT
  Sex: Female

DRUGS (3)
  1. LORTAB [Concomitant]
     Indication: PAIN
     Dosage: UNK
  2. TEMAZEPAM [Concomitant]
     Indication: INSOMNIA
     Dosage: UNK
  3. FENTANYL [Suspect]
     Indication: PAIN
     Dosage: 50 UG/HR Q 3 DAYS
     Route: 062
     Dates: start: 20110101

REACTIONS (1)
  - MUSCULOSKELETAL PAIN [None]
